FAERS Safety Report 8030374-4 (Version None)
Quarter: 2011Q4

REPORT INFORMATION
  Report Type: 
  Country: None (occurrence: None)
  Receive Date: 20111130
  Receipt Date: 20110502
  Transmission Date: 20120403
  Serious: Yes (Hospitalization, Other)
  Sender: FDA-Public Use
  Company Number: US200905004479

PATIENT
  Age: 58 Year
  Sex: Male
  Weight: 109.8 kg

DRUGS (7)
  1. LASIX [Concomitant]
  2. BYETTA [Suspect]
     Dates: start: 20060201, end: 20080701
  3. NEXIUM [Concomitant]
  4. EXENATIDE UNK STRENGTH PEN, DISPOSABLE DEVICE (EXENATIDE PEN (UNKNOWN [Concomitant]
  5. GLUCOPHAGE [Concomitant]
  6. LOPID [Concomitant]
  7. LANTUS [Concomitant]

REACTIONS (3)
  - RENAL FAILURE [None]
  - OFF LABEL USE [None]
  - PANCREATITIS ACUTE [None]
